FAERS Safety Report 6163347-7 (Version None)
Quarter: 2009Q2

REPORT INFORMATION
  Report Type: 
  Country: None (occurrence: None)
  Receive Date: 20090420
  Receipt Date: 20090420
  Transmission Date: 20091009
  Serious: No
  Sender: FDA-Public Use
  Company Number: None

PATIENT
  Age: 49 Year
  Sex: Male
  Weight: 110.7 kg

DRUGS (4)
  1. VARENICLINE [Suspect]
     Indication: SMOKING CESSATION THERAPY
     Dosage: 1 MG BID PO
     Route: 048
     Dates: start: 20070503, end: 20070925
  2. PSYLLIUM [Concomitant]
  3. QUETIAPINE FUMARATE [Concomitant]
  4. THERAPEUTIC VITAMINS + MINS [Concomitant]

REACTIONS (1)
  - PSYCHOTIC DISORDER [None]
